FAERS Safety Report 4618155-2 (Version None)
Quarter: 2005Q2

REPORT INFORMATION
  Report Type: 
  Country: None (occurrence: None)
  Receive Date: 20050316
  Receipt Date: 20041214
  Transmission Date: 20051028
  Serious: Yes (Other)
  Sender: FDA-Public Use
  Company Number: S04-USA-07841-01

PATIENT
  Age: 50 Year
  Sex: Male

DRUGS (7)
  1. LEXAPRO [Suspect]
     Indication: DEPRESSION
     Dosage: 20 MG QD PO
     Route: 048
     Dates: end: 20041018
  2. LEXAPRO [Suspect]
     Indication: DEPRESSION
     Dosage: 10 MG QD PO
     Route: 048
     Dates: start: 20041019, end: 20041101
  3. LEXAPRO [Suspect]
     Indication: DEPRESSION
     Dates: start: 20031101
  4. LIPITOR [Suspect]
     Indication: HYPERCHOLESTEROLAEMIA
     Dates: end: 20041101
  5. ULTRAM [Concomitant]
  6. KLONOPIN [Concomitant]
  7. ATIVAN [Concomitant]

REACTIONS (1)
  - HEPATITIS [None]
